FAERS Safety Report 10206845 (Version 2)
Quarter: 2014Q2

REPORT INFORMATION
  Report Type: Spontaneous
  Country: JP (occurrence: JP)
  Receive Date: 20140530
  Receipt Date: 20140623
  Transmission Date: 20141212
  Serious: Yes (Death, Life-Threatening)
  Sender: FDA-Public Use
  Company Number: JP-ASTRAZENECA-2014SE36184

PATIENT
  Age: 41 Year
  Sex: Male

DRUGS (4)
  1. PROPOFOL [Suspect]
     Indication: MECHANICAL VENTILATION
     Dosage: LARGE DOSES
     Route: 042
  2. CARPERITIDE [Concomitant]
     Indication: CARDIAC FAILURE ACUTE
  3. NITROGLYCERINE [Concomitant]
     Indication: CARDIAC FAILURE ACUTE
  4. DIURETICS [Concomitant]

REACTIONS (2)
  - Cardiogenic shock [Fatal]
  - Arteriospasm coronary [Not Recovered/Not Resolved]
